FAERS Safety Report 6433749-X (Version None)
Quarter: 2009Q4

REPORT INFORMATION
  Report Type: 
  Country: None (occurrence: None)
  Receive Date: 20091110
  Receipt Date: 20091103
  Transmission Date: 20100525
  Serious: Yes (Disabling)
  Sender: FDA-Public Use
  Company Number: FR-ROCHE-666470

PATIENT
  Sex: Male

DRUGS (3)
  1. VESANOID [Suspect]
     Indication: ACUTE PROMYELOCYTIC LEUKAEMIA
     Route: 048
     Dates: start: 20070501, end: 20070901
  2. TRISENOX [Suspect]
     Indication: ACUTE PROMYELOCYTIC LEUKAEMIA
     Dosage: STRENGTH: 1 MG/ML, FORMULATION: DRIP SOLUTION
     Route: 042
     Dates: start: 20070523, end: 20070701
  3. CORDARONE [Suspect]
     Indication: ATRIAL FLUTTER
     Dosage: FORM: DIVISIBLE TABLET
     Route: 048
     Dates: start: 20070501

REACTIONS (2)
  - PARAESTHESIA [None]
  - PERIPHERAL SENSORIMOTOR NEUROPATHY [None]
